FAERS Safety Report 7977837-5 (Version None)
Quarter: 2011Q4

REPORT INFORMATION
  Report Type: 
  Country: None (occurrence: None)
  Receive Date: 20111214
  Receipt Date: 20111202
  Transmission Date: 20120403
  Serious: No
  Sender: FDA-Public Use
  Company Number: US-AMGEN-USASP2011057241

PATIENT
  Age: 63 Year
  Sex: Male
  Weight: 89.796 kg

DRUGS (9)
  1. ENBREL [Suspect]
     Indication: PSORIASIS
  2. FISH OIL [Concomitant]
  3. ENBREL [Suspect]
     Indication: PSORIATIC ARTHROPATHY
     Dosage: 50 MG, 2 TIMES/WK
     Route: 058
     Dates: start: 20111027
  4. TEMOVATE [Concomitant]
  5. CHONDROITIN [Concomitant]
  6. INDOCIN                            /00003801/ [Concomitant]
  7. VICODIN [Concomitant]
  8. LOVENOX [Concomitant]
  9. GLUCOSAMINE [Concomitant]

REACTIONS (5)
  - INJECTION SITE ERYTHEMA [None]
  - FALL [None]
  - RIB FRACTURE [None]
  - INJECTION SITE SWELLING [None]
  - INCORRECT ROUTE OF DRUG ADMINISTRATION [None]
